FAERS Safety Report 13784501 (Version 1)
Quarter: 2017Q3

REPORT INFORMATION
  Report Type: Spontaneous
  Country: US (occurrence: US)
  Receive Date: 20170724
  Receipt Date: 20170724
  Transmission Date: 20171127
  Serious: No
  Sender: FDA-Public Use
  Company Number: US-IMPAX LABORATORIES, INC-2017-IPXL-01170

PATIENT
  Age: 48 Year
  Sex: Female
  Weight: 73 kg

DRUGS (2)
  1. RYTARY [Suspect]
     Active Substance: CARBIDOPA\LEVODOPA
     Dosage: 23.75/95 MG 5 CAPSULES AT 6AM, 4 CAPSULES AT 10AM, AND 4 CAPSULES AT 4PM.
     Route: 048
     Dates: start: 20170418
  2. RYTARY [Suspect]
     Active Substance: CARBIDOPA\LEVODOPA
     Indication: PARKINSON^S DISEASE
     Dosage: 36.25/145MG 2 CAP IN MORNING, 1 CAP DURING DAY, 1 CAP EVENING+23.75/95MG 1 CAP IN AFTERNOON, EVENING
     Route: 048
     Dates: start: 201609, end: 20170301

REACTIONS (2)
  - Insurance issue [Unknown]
  - Pre-existing condition improved [Unknown]

NARRATIVE: CASE EVENT DATE: 20170301
